FAERS Safety Report 6470104-0 (Version None)
Quarter: 2009Q4

REPORT INFORMATION
  Report Type: 
  Country: None (occurrence: None)
  Receive Date: 20091203
  Receipt Date: 20080116
  Transmission Date: 20100525
  Serious: Yes (Hospitalization)
  Sender: FDA-Public Use
  Company Number: US-ELI_LILLY_AND_COMPANY-US200712002248

PATIENT
  Sex: Female
  Weight: 52.608 kg

DRUGS (10)
  1. FORTEO [Suspect]
     Indication: OSTEOPOROSIS
     Dosage: 20 UG, DAILY (1/D)
     Route: 058
     Dates: start: 20071208
  2. CALCIUM CARBONATE [Concomitant]
  3. GABAPENTIN [Concomitant]
  4. SEROQUEL [Concomitant]
  5. MIRTAZAPINE [Concomitant]
  6. PRIMIDONE [Concomitant]
  7. PAXIL CR [Concomitant]
  8. NIFEDIPINE [Concomitant]
  9. BENICAR [Concomitant]
  10. FUROSEMIDE [Concomitant]

REACTIONS (1)
  - ANXIETY [None]
